FAERS Safety Report 6598803-0 (Version None)
Quarter: 2010Q1

REPORT INFORMATION
  Report Type: 
  Country: None (occurrence: None)
  Receive Date: 20100217
  Receipt Date: 20100127
  Transmission Date: 20100710
  Serious: Yes (Hospitalization)
  Sender: FDA-Public Use
  Company Number: 2009AC000092

PATIENT
  Age: 56 Year
  Sex: Female
  Weight: 117.9352 kg

DRUGS (53)
  1. DIGOXIN [Suspect]
     Dosage: 0.25 MG; QD; PO
     Route: 048
     Dates: start: 20040101
  2. NORVASC [Concomitant]
  3. LEVOXYL [Concomitant]
  4. METFORMIN HYDROCHLORIDE [Concomitant]
  5. PLAVIX [Concomitant]
  6. CORGARD [Concomitant]
  7. LORTAB [Concomitant]
  8. FLEXERIL [Concomitant]
  9. EQUALINE [Concomitant]
  10. LIPITOR [Concomitant]
  11. DILANTIN [Concomitant]
  12. LEVOTHYROXINE [Concomitant]
  13. HYDROCODONE [Concomitant]
  14. LISINOPRIL [Concomitant]
  15. FUROSEMIDE [Concomitant]
  16. ASPIRIN [Concomitant]
  17. ZETIA [Concomitant]
  18. NITROGLYCERIN [Concomitant]
  19. PROZAC [Concomitant]
  20. NOVOLOG [Concomitant]
  21. POTASSIUM [Concomitant]
  22. DIXEPIN [Concomitant]
  23. NADOLOL [Concomitant]
  24. TRIGLIDE [Concomitant]
  25. NOVOLIN [Concomitant]
  26. CARDIZEM [Concomitant]
  27. NEXIUM [Concomitant]
  28. LOVENOX [Concomitant]
  29. GLUCOPHAGE [Concomitant]
  30. TEGRETOL [Concomitant]
  31. LEVOTHROID [Concomitant]
  32. GLUCOVANCE [Concomitant]
  33. DOXEPIN HCL [Concomitant]
  34. FLUOXETINE [Concomitant]
  35. ATIVAN [Concomitant]
  36. FOLTX [Concomitant]
  37. THYROID TAB [Concomitant]
  38. CYCLOBENZAPRINE [Concomitant]
  39. DARVOCET [Concomitant]
  40. NITROGLYCERIN [Concomitant]
  41. ASPIRIN [Concomitant]
  42. ZETIA [Concomitant]
  43. LEVOTHROID [Concomitant]
  44. LIPITOR [Concomitant]
  45. VICODIN [Concomitant]
  46. LANTUS [Concomitant]
  47. MECLIZINE [Concomitant]
  48. REQUIP [Concomitant]
  49. MORPHINE [Concomitant]
  50. NEXIUM [Concomitant]
  51. PLAVIX [Concomitant]
  52. DARVOCET-N 100 [Concomitant]
  53. NOVOLOG [Concomitant]

REACTIONS (23)
  - ACUTE CORONARY SYNDROME [None]
  - ANGINA UNSTABLE [None]
  - BACK PAIN [None]
  - BLOOD GLUCOSE INCREASED [None]
  - CARDIAC FAILURE CONGESTIVE [None]
  - CORONARY ARTERY STENOSIS [None]
  - COSTOCHONDRITIS [None]
  - DIABETES MELLITUS [None]
  - DYSPEPSIA [None]
  - ECONOMIC PROBLEM [None]
  - FACIAL PAIN [None]
  - FEELING ABNORMAL [None]
  - HEPATIC STEATOSIS [None]
  - HYPERLIPIDAEMIA [None]
  - HYPERTENSION [None]
  - MUSCULOSKELETAL PAIN [None]
  - MYOCARDIAL INFARCTION [None]
  - MYOCARDIAL ISCHAEMIA [None]
  - NEUROPATHY PERIPHERAL [None]
  - RESTLESS LEGS SYNDROME [None]
  - SLEEP APNOEA SYNDROME [None]
  - SURGERY [None]
  - TRANSIENT ISCHAEMIC ATTACK [None]
